FAERS Safety Report 7765821-6 (Version None)
Quarter: 2011Q3

REPORT INFORMATION
  Report Type: 
  Country: None (occurrence: None)
  Receive Date: 20110921
  Receipt Date: 20110914
  Transmission Date: 20111222
  Serious: Yes (Hospitalization)
  Sender: FDA-Public Use
  Company Number: US-B.I. PHARMACEUTICALS,INC./RIDGEFIELD-2011-BP-22205BP

PATIENT
  Sex: Female

DRUGS (6)
  1. EXELON [Concomitant]
     Indication: DEMENTIA
     Route: 061
  2. HYDROCHLOROTHIAZIDE [Concomitant]
     Dosage: 12.5 MG
     Route: 048
  3. NAMENDA [Concomitant]
     Indication: DEMENTIA
     Route: 048
     Dates: start: 20110601
  4. PRADAXA [Suspect]
     Indication: ATRIAL FIBRILLATION
     Dosage: 300 MG
     Route: 048
     Dates: start: 20110818
  5. METOPROLOL TARTRATE [Concomitant]
     Indication: HYPERTENSION
     Dosage: 100 MG
     Route: 048
     Dates: start: 19960101
  6. CEREFOLIN [Concomitant]
     Indication: DEMENTIA
     Route: 048
     Dates: start: 20110601

REACTIONS (11)
  - HELICOBACTER GASTRITIS [None]
  - OESOPHAGITIS [None]
  - INTESTINAL OBSTRUCTION [None]
  - HAEMATEMESIS [None]
  - KIDNEY INFECTION [None]
  - HAEMOGLOBIN DECREASED [None]
  - MELAENA [None]
  - GASTROOESOPHAGEAL REFLUX DISEASE [None]
  - HIATUS HERNIA [None]
  - NEPHROLITHIASIS [None]
  - HAEMATURIA [None]
